FAERS Safety Report 4833655-8 (Version None)
Quarter: 2005Q4

REPORT INFORMATION
  Report Type: 
  Country: None (occurrence: None)
  Receive Date: 20051116
  Receipt Date: 20051101
  Transmission Date: 20060501
  Serious: Yes (Hospitalization)
  Sender: FDA-Public Use
  Company Number: MEDI-0003799

PATIENT
  Age: 81 Year
  Sex: Female
  Weight: 62.5964 kg

DRUGS (9)
  1. ETHYOL [Suspect]
     Indication: RADIOTHERAPY
     Dates: start: 20050907, end: 20051011
  2. RADIATION THERAPY [Concomitant]
  3. ATENOLOL [Concomitant]
  4. NITRO PATCH (GLYCERYL TRINITRATE) [Concomitant]
  5. LASIX [Concomitant]
  6. SALAGEN [Concomitant]
  7. NIFEDIPINE [Concomitant]
  8. PREVACID [Concomitant]
  9. ASPIRIN [Concomitant]

REACTIONS (5)
  - HAEMORRHAGIC DISORDER [None]
  - MUCOSAL INFLAMMATION [None]
  - NEUTROPENIA [None]
  - SEPSIS [None]
  - TONGUE DISORDER [None]
